FAERS Safety Report 14612079 (Version 1)
Quarter: 2018Q1

REPORT INFORMATION
  Report Type: Spontaneous
  Country: US (occurrence: US)
  Receive Date: 20180307
  Receipt Date: 20180307
  Transmission Date: 20180509
  Serious: Yes (Hospitalization, Other)
  Sender: FDA-Public Use
  Company Number: None

PATIENT
  Age: 69 Year
  Sex: Male
  Weight: 81 kg

DRUGS (1)
  1. TOFACITINIB [Suspect]
     Active Substance: TOFACITINIB
     Indication: PSORIATIC ARTHROPATHY
     Route: 048
     Dates: start: 20170701, end: 20180223

REACTIONS (5)
  - Arthralgia [None]
  - Post procedural infection [None]
  - Micrococcus test positive [None]
  - Joint swelling [None]
  - Condition aggravated [None]

NARRATIVE: CASE EVENT DATE: 20180228
